FAERS Safety Report 8563349 (Version 2)
Quarter: 2014Q1

REPORT INFORMATION
  Report Type: Spontaneous
  Country: US (occurrence: US)
  Receive Date: 20120515
  Receipt Date: 20140210
  Transmission Date: 20141002
  Serious: Yes (Hospitalization, Other)
  Sender: FDA-Public Use
  Company Number: US-BAYER-2012-046735

PATIENT
  Age: 20 Year
  Sex: Female

DRUGS (4)
  1. YASMIN [Suspect]
  2. YAZ [Suspect]
  3. PERCOCET [Concomitant]
  4. LEVAQUIN [Concomitant]
     Dosage: 500 MG, FOR FIVE DAYS

REACTIONS (7)
  - Gallbladder injury [None]
  - Cholecystitis acute [None]
  - Injury [None]
  - Pain [None]
  - Anxiety [None]
  - Anhedonia [None]
  - Quality of life decreased [None]
